FAERS Safety Report 21632917 (Version 1)
Quarter: 2022Q4

REPORT INFORMATION
  Report Type: Report from Study
  Country: US (occurrence: US)
  Receive Date: 20221123
  Receipt Date: 20221123
  Transmission Date: 20230113
  Serious: No
  Sender: FDA-Public Use
  Company Number: US-ABBVIE-22K-163-4437250-00

PATIENT
  Sex: Female

DRUGS (1)
  1. SKYRIZI [Suspect]
     Active Substance: RISANKIZUMAB-RZAA
     Indication: Psoriasis
     Route: 058

REACTIONS (7)
  - Insomnia [Recovering/Resolving]
  - Visual impairment [Recovering/Resolving]
  - Abdominal discomfort [Recovering/Resolving]
  - Diarrhoea [Unknown]
  - Fall [Recovering/Resolving]
  - Gastrointestinal disorder [Recovering/Resolving]
  - Rib fracture [Unknown]
